FAERS Safety Report 18226890 (Version 1)
Quarter: 2020Q3

REPORT INFORMATION
  Report Type: Report from Study
  Country: US (occurrence: US)
  Receive Date: 20200903
  Receipt Date: 20200903
  Transmission Date: 20201103
  Serious: Yes (Life-Threatening, Hospitalization, Other)
  Sender: FDA-Public Use
  Company Number: US-BAYER-2020-142427

PATIENT
  Age: 65 Year
  Sex: Male
  Weight: 74.29 kg

DRUGS (5)
  1. ADEMPAS [Suspect]
     Active Substance: RIOCIGUAT
     Indication: PULMONARY ARTERIAL HYPERTENSION
     Dosage: UNK
  2. ADEMPAS [Suspect]
     Active Substance: RIOCIGUAT
     Indication: PULMONARY ARTERIAL HYPERTENSION
     Dosage: 1.5 MG, TID
     Route: 048
     Dates: start: 20200511, end: 202007
  3. ADEMPAS [Suspect]
     Active Substance: RIOCIGUAT
     Indication: PULMONARY ARTERIAL HYPERTENSION
     Dosage: 0.5 MG, UNK
     Route: 048
     Dates: start: 202007
  4. REMODULIN [Suspect]
     Active Substance: TREPROSTINIL
     Indication: PULMONARY ARTERIAL HYPERTENSION
     Dosage: 0.018 ?G/KG, CONT
     Route: 042
     Dates: start: 20200401
  5. REMODULIN [Suspect]
     Active Substance: TREPROSTINIL
     Indication: PULMONARY ARTERIAL HYPERTENSION
     Dosage: 0.020 ?G/KG, CONT
     Route: 042
     Dates: start: 2020

REACTIONS (21)
  - Infusion site erythema [Unknown]
  - Suture related complication [Unknown]
  - Respiratory failure [Unknown]
  - Colitis ulcerative [Unknown]
  - Nausea [Unknown]
  - Overdose [Unknown]
  - Device use error [Unknown]
  - Dyspnoea [Unknown]
  - Feeling abnormal [Not Recovered/Not Resolved]
  - Mental impairment [Not Recovered/Not Resolved]
  - Infusion site bruising [Unknown]
  - Dehydration [Unknown]
  - Dehydration [Unknown]
  - Hypotension [Unknown]
  - Weight decreased [Unknown]
  - Oxygen saturation decreased [None]
  - Diarrhoea [Not Recovered/Not Resolved]
  - Vomiting [Unknown]
  - Device dislocation [Unknown]
  - Anorectal discomfort [Recovering/Resolving]
  - Diarrhoea [Unknown]

NARRATIVE: CASE EVENT DATE: 2020
